FAERS Safety Report 21952025 (Version 5)
Quarter: 2023Q4

REPORT INFORMATION
  Report Type: Report from Study
  Country: ZA (occurrence: ZA)
  Receive Date: 20230203
  Receipt Date: 20231004
  Transmission Date: 20240109
  Serious: Yes (Hospitalization, Disabling, Other)
  Sender: FDA-Public Use
  Company Number: ZA-002147023-NVSC2023ZA022892

PATIENT
  Age: 58 Year
  Sex: Female

DRUGS (2)
  1. SIPONIMOD [Suspect]
     Active Substance: SIPONIMOD
     Indication: Secondary progressive multiple sclerosis
     Dosage: 0.25 MG, QD (ADMINISTRATION AS PER KIENDRA TITRATION SCHEDULE)
     Route: 048
     Dates: start: 20221231
  2. SIPONIMOD [Suspect]
     Active Substance: SIPONIMOD
     Dosage: 2 MG, QD
     Route: 048

REACTIONS (15)
  - Back pain [Not Recovered/Not Resolved]
  - Mobility decreased [Not Recovered/Not Resolved]
  - Spondylitis [Not Recovered/Not Resolved]
  - Procedural pain [Not Recovered/Not Resolved]
  - Decreased appetite [Unknown]
  - Kyphosis [Unknown]
  - Compression fracture [Unknown]
  - Skin discolouration [Unknown]
  - Muscle tightness [Recovering/Resolving]
  - Weight decreased [Unknown]
  - Wound [Unknown]
  - Gait disturbance [Unknown]
  - Arthritis [Not Recovered/Not Resolved]
  - Osteoporosis [Not Recovered/Not Resolved]
  - Spinal pain [Not Recovered/Not Resolved]

NARRATIVE: CASE EVENT DATE: 20230102
